FAERS Safety Report 9525375 (Version 1)
Quarter: 2013Q3

REPORT INFORMATION
  Report Type: Spontaneous
  Country: GB (occurrence: GB)
  Receive Date: 20130916
  Receipt Date: 20130916
  Transmission Date: 20140515
  Serious: Yes (Disabling)
  Sender: FDA-Public Use
  Company Number: GB-PFIZER INC-2013259249

PATIENT
  Age: 74 Year
  Sex: Female

DRUGS (6)
  1. SUNITINIB MALATE [Suspect]
     Dosage: UNK
     Dates: end: 20130708
  2. OMEPRAZOLE [Concomitant]
     Dosage: UNK
  3. LEVOTHYROXINE [Concomitant]
     Dosage: UNK
  4. PARACETAMOL [Concomitant]
     Dosage: UNK
  5. DIHYDROCODEINE [Concomitant]
     Dosage: UNK
  6. AMLODIPINE [Concomitant]
     Dosage: UNK

REACTIONS (3)
  - Temporal arteritis [Recovering/Resolving]
  - Headache [Unknown]
  - Tenderness [Unknown]
